FAERS Safety Report 5808154-7 (Version None)
Quarter: 2008Q3

REPORT INFORMATION
  Report Type: 
  Country: None (occurrence: None)
  Receive Date: 20080711
  Receipt Date: 20080703
  Transmission Date: 20090109
  Serious: Yes (Hospitalization, Other)
  Sender: FDA-Public Use
  Company Number: US-AMGEN-QUU292084

PATIENT
  Sex: Male

DRUGS (1)
  1. NEUPOGEN [Suspect]
     Indication: DRUG USE FOR UNKNOWN INDICATION
     Dates: start: 20050101

REACTIONS (9)
  - BLOOD COUNT ABNORMAL [None]
  - CELLULITIS [None]
  - FEELING HOT [None]
  - JOINT CREPITATION [None]
  - MYELODYSPLASTIC SYNDROME [None]
  - OCULAR HYPERAEMIA [None]
  - PYREXIA [None]
  - ROTATOR CUFF SYNDROME [None]
  - SKIN DISCOLOURATION [None]
